FAERS Safety Report 12247019 (Version 2)
Quarter: 2016Q2

REPORT INFORMATION
  Report Type: Spontaneous
  Country: DE (occurrence: JP)
  Receive Date: 20160407
  Receipt Date: 20160506
  Transmission Date: 20160815
  Serious: Yes (Death)
  Sender: FDA-Public Use
  Company Number: JP-BRACCO-010048

PATIENT
  Age: 50 Year
  Sex: Male
  Weight: 65 kg

DRUGS (3)
  1. MYOCOR [Suspect]
     Active Substance: NITROGLYCERIN
     Indication: CORONARY ARTERY DILATATION
     Route: 060
     Dates: start: 20160322, end: 20160322
  2. IOPAMIRON [Suspect]
     Active Substance: IOPAMIDOL
     Indication: ANGIOGRAM
     Route: 040
     Dates: start: 20160322, end: 20160322
  3. LOPRESSOR [Suspect]
     Active Substance: METOPROLOL TARTRATE
     Indication: PRODUCT USED FOR UNKNOWN INDICATION
     Route: 048
     Dates: start: 20160322, end: 20160322

REACTIONS (2)
  - Anaphylactic shock [Fatal]
  - Foaming at mouth [None]

NARRATIVE: CASE EVENT DATE: 20160322
